FAERS Safety Report 12843617 (Version 1)
Quarter: 2016Q4

REPORT INFORMATION
  Report Type: Spontaneous
  Country: US (occurrence: US)
  Receive Date: 20161013
  Receipt Date: 20161013
  Transmission Date: 20170207
  Serious: No
  Sender: FDA-Public Use
  Company Number: None

PATIENT
  Age: 76 Year
  Sex: Female
  Weight: 81.72 kg

DRUGS (11)
  1. OMEPRAZOLE. [Concomitant]
     Active Substance: OMEPRAZOLE
  2. METAMUCILE [Concomitant]
  3. HYOSCYAMINE 0.125MG ORAL DIS TABS [Suspect]
     Active Substance: HYOSCYAMINE
     Indication: IRRITABLE BOWEL SYNDROME
     Dosage: 1 TAB UNDER TONGUE 4 TIMES DAILY AS NEEDED?
     Route: 060
     Dates: start: 20160909, end: 20160911
  4. HYOSCYAMINE 0.125MG ORAL DIS TABS [Suspect]
     Active Substance: HYOSCYAMINE
     Indication: DIVERTICULITIS
     Dosage: 1 TAB UNDER TONGUE 4 TIMES DAILY AS NEEDED?
     Route: 060
     Dates: start: 20160909, end: 20160911
  5. GABAPENTINE [Concomitant]
     Active Substance: GABAPENTIN
  6. CRANBERRY. [Concomitant]
     Active Substance: CRANBERRY
  7. DICYCOLOMINE [Concomitant]
  8. VITAMIN B12 [Concomitant]
     Active Substance: CYANOCOBALAMIN
  9. CALCIUM+D [Concomitant]
     Active Substance: CALCIUM\VITAMIN D
  10. METOPROLOL. [Concomitant]
     Active Substance: METOPROLOL
  11. PROBIOTIC [Concomitant]
     Active Substance: PROBIOTICS NOS

REACTIONS (13)
  - Hallucination, visual [None]
  - Dizziness [None]
  - Vertigo [None]
  - Speech disorder [None]
  - Balance disorder [None]
  - Abasia [None]
  - Headache [None]
  - Disturbance in attention [None]
  - Product quality issue [None]
  - Dry mouth [None]
  - Heart rate irregular [None]
  - Confusional state [None]
  - Cystitis [None]

NARRATIVE: CASE EVENT DATE: 20160909
